FAERS Safety Report 7183595-7 (Version None)
Quarter: 2010Q4

REPORT INFORMATION
  Report Type: 
  Country: None (occurrence: None)
  Receive Date: 20101220
  Receipt Date: 20101220
  Transmission Date: 20110411
  Serious: Yes (Hospitalization)
  Sender: FDA-Public Use
  Company Number: None

PATIENT
  Age: 80 Year
  Sex: Male
  Weight: 81 kg

DRUGS (15)
  1. COUMADIN [Suspect]
     Indication: ATRIAL FIBRILLATION
     Dosage: PO  CHRONIC
     Route: 048
  2. FLUCONAZOLE [Suspect]
     Indication: FUNGAL INFECTION
     Dosage: PO  RECENT
     Route: 048
  3. PREDNISONE [Concomitant]
  4. GEMFIBROZIL [Concomitant]
  5. ASACOL [Concomitant]
  6. MAG OX [Concomitant]
  7. DIGOXIN [Concomitant]
  8. VIT B1 [Concomitant]
  9. SENOKOT [Concomitant]
  10. PROCHLOPERAZINE [Concomitant]
  11. NEXIUM [Concomitant]
  12. VIT B [Concomitant]
  13. VIT D [Concomitant]
  14. VICODIN [Concomitant]
  15. REMERON [Concomitant]

REACTIONS (3)
  - INTERNATIONAL NORMALISED RATIO INCREASED [None]
  - RECTAL HAEMORRHAGE [None]
  - URETHRAL HAEMORRHAGE [None]
